FAERS Safety Report 9270627 (Version 3)
Quarter: 2013Q3

REPORT INFORMATION
  Report Type: Spontaneous
  Country: US (occurrence: US)
  Receive Date: 20130503
  Receipt Date: 20130820
  Transmission Date: 20140515
  Serious: Yes (Hospitalization, Other)
  Sender: FDA-Public Use
  Company Number: US-ASTRAZENECA-2013SE29390

PATIENT
  Age: 68 Year
  Sex: Female

DRUGS (4)
  1. NEXIUM [Suspect]
     Indication: GASTROOESOPHAGEAL REFLUX DISEASE
     Route: 048
  2. UNSPECIFIED MEDICATIONS [Suspect]
     Route: 065
  3. BLOOD THINNER [Concomitant]
     Indication: ANTICACHECTIC THERAPY
     Dates: end: 200912
  4. MANY MEDICATIONS [Concomitant]

REACTIONS (15)
  - Haemorrhagic stroke [Unknown]
  - Paralysis [Unknown]
  - Fall [Unknown]
  - Patella fracture [Unknown]
  - Haemoptysis [Unknown]
  - Embolism [Unknown]
  - Atrial septal defect [Unknown]
  - Hip fracture [Unknown]
  - Lower limb fracture [Unknown]
  - Thyroid disorder [Unknown]
  - Obesity [Unknown]
  - Sleep disorder [Unknown]
  - Aphonia [Unknown]
  - Malaise [Unknown]
  - Drug dose omission [Unknown]
